FAERS Safety Report 7655514-8 (Version None)
Quarter: 2011Q3

REPORT INFORMATION
  Report Type: 
  Country: None (occurrence: None)
  Receive Date: 20110801
  Receipt Date: 20110719
  Transmission Date: 20111222
  Serious: Yes (Other)
  Sender: FDA-Public Use
  Company Number: HA11-170-AE

PATIENT
  Age: 34 Year
  Sex: Female
  Weight: 57.6068 kg

DRUGS (2)
  1. SULFAMETHOXAZOLE AND TRIMETHOPRIM [Suspect]
     Indication: URINARY TRACT INFECTION
     Dosage: 1 TABLET, BID, ORAL
     Route: 048
     Dates: start: 20110416, end: 20110417
  2. ZYRTEC [Suspect]

REACTIONS (11)
  - SWOLLEN TONGUE [None]
  - THROAT TIGHTNESS [None]
  - VASCULITIS [None]
  - TREMOR [None]
  - WEIGHT DECREASED [None]
  - INFLUENZA LIKE ILLNESS [None]
  - DEPRESSION [None]
  - DYSPNOEA [None]
  - CONVULSION [None]
  - PALPITATIONS [None]
  - HYPOPHAGIA [None]
